FAERS Safety Report 7467285-9 (Version None)
Quarter: 2011Q2

REPORT INFORMATION
  Report Type: 
  Country: None (occurrence: None)
  Receive Date: 20110428
  Receipt Date: 20110413
  Transmission Date: 20111010
  Serious: Yes (Hospitalization)
  Sender: FDA-Public Use
  Company Number: 2011MA003844

PATIENT
  Age: 46 Year
  Sex: Female

DRUGS (2)
  1. HYDROCHLOROTHIAZIDE [Suspect]
     Indication: HYPERTENSION
     Dosage: 25 MG, OD
  2. ATENOLOL [Concomitant]

REACTIONS (7)
  - SHOCK [None]
  - LUNG INFILTRATION [None]
  - RALES [None]
  - PULMONARY OEDEMA [None]
  - DYSPNOEA [None]
  - VOMITING [None]
  - DIZZINESS [None]
